FAERS Safety Report 9496933 (Version 4)
Quarter: 2014Q3

REPORT INFORMATION
  Report Type: Spontaneous
  Country: US (occurrence: US)
  Receive Date: 20130904
  Receipt Date: 20140807
  Transmission Date: 20150326
  Serious: Yes (Hospitalization, Other)
  Sender: FDA-Public Use
  Company Number: US-AMGEN-USASP2013045167

PATIENT
  Age: 52 Year
  Sex: Male

DRUGS (3)
  1. INSULIN [Concomitant]
     Active Substance: INSULIN NOS
     Indication: DIABETES MELLITUS
     Dosage: UNK
     Route: 058
  2. TRIAMCINOLONE [Concomitant]
     Active Substance: TRIAMCINOLONE
     Indication: PSORIASIS
     Dosage: UNK
     Route: 061
     Dates: start: 201208
  3. ENBREL [Suspect]
     Active Substance: ETANERCEPT
     Indication: PSORIATIC ARTHROPATHY
     Dosage: 50 MG, 2 TIMES/WK
     Route: 065
     Dates: start: 20120827

REACTIONS (17)
  - Cyst [Not Recovered/Not Resolved]
  - Extra dose administered [Recovered/Resolved]
  - Skin injury [Not Recovered/Not Resolved]
  - Dizziness [Recovered/Resolved]
  - Skin disorder [Not Recovered/Not Resolved]
  - Dyspnoea [Recovered/Resolved]
  - Arthralgia [Recovered/Resolved]
  - Psoriasis [Not Recovered/Not Resolved]
  - Injection site pain [Not Recovered/Not Resolved]
  - Myocardial infarction [Recovered/Resolved]
  - Tooth infection [Not Recovered/Not Resolved]
  - Blood glucose increased [Not Recovered/Not Resolved]
  - Skin hypertrophy [Not Recovered/Not Resolved]
  - Infection [Recovered/Resolved]
  - Alveolar osteitis [Not Recovered/Not Resolved]
  - Toothache [Not Recovered/Not Resolved]
  - Splinter [Not Recovered/Not Resolved]

NARRATIVE: CASE EVENT DATE: 20120827
